FAERS Safety Report 7434578-0 (Version None)
Quarter: 2011Q2

REPORT INFORMATION
  Report Type: 
  Country: None (occurrence: None)
  Receive Date: 20110425
  Receipt Date: 20110419
  Transmission Date: 20111010
  Serious: No
  Sender: FDA-Public Use
  Company Number: US-B.I. PHARMACEUTICALS,INC./RIDGEFIELD-2011-BP-03467BP

PATIENT
  Sex: Male

DRUGS (11)
  1. SAVELLA [Concomitant]
     Dosage: 50 MG
  2. PRADAXA [Suspect]
     Indication: ATRIAL FIBRILLATION
     Dosage: 300 MG
     Route: 048
     Dates: start: 20101201
  3. DILTIAZEM [Concomitant]
     Indication: CARDIAC DISORDER
     Dosage: 240 MG
  4. DIGOXIN [Concomitant]
     Indication: CARDIAC DISORDER
     Dosage: 0.25 MG
  5. WELCHOL [Concomitant]
     Indication: DIARRHOEA
     Dosage: 1250 MG
  6. ATENOLOL [Concomitant]
     Indication: CARDIAC DISORDER
     Dosage: 25 MG
  7. PROAIR HFA [Concomitant]
     Indication: EMPHYSEMA
     Dates: start: 20100101
  8. LISINOPRIL [Concomitant]
     Indication: CARDIAC DISORDER
     Dosage: 2.5 MG
  9. RHINOCORT [Concomitant]
     Indication: RHINITIS
  10. ADVAIR HFA [Concomitant]
     Indication: EMPHYSEMA
     Dates: start: 20100101
  11. SPIRIVA [Concomitant]
     Indication: EMPHYSEMA
     Dosage: 18 MCG
     Route: 055
     Dates: start: 20100101

REACTIONS (2)
  - DIARRHOEA [None]
  - MEDICATION RESIDUE [None]
